FAERS Safety Report 5642290-3 (Version None)
Quarter: 2008Q1

REPORT INFORMATION
  Report Type: 
  Country: None (occurrence: None)
  Receive Date: 20080226
  Receipt Date: 20080211
  Transmission Date: 20080703
  Serious: Yes (Hospitalization)
  Sender: FDA-Public Use
  Company Number: S08-GER-00662-01

PATIENT
  Age: 21 Year
  Sex: Female

DRUGS (8)
  1. CITALOPRAM HYDROBROMIDE [Suspect]
     Dosage: 20 MG QD PO
     Route: 048
     Dates: start: 20071115, end: 20071220
  2. CITALOPRAM HYDROBROMIDE [Suspect]
     Dosage: 20 MG QD PO
     Route: 048
     Dates: start: 20071108, end: 20071114
  3. LAMICTAL [Suspect]
     Dosage: 150 MG QD PO
     Route: 048
     Dates: start: 20071217, end: 20071218
  4. LAMICTAL [Suspect]
     Dosage: 25 MG QD PO
     Route: 048
     Dates: start: 20071207, end: 20071208
  5. LAMICTAL [Suspect]
     Dosage: 50 MG QD PO
     Route: 048
     Dates: start: 20071209, end: 20071210
  6. LAMICTAL [Suspect]
     Dosage: 75 MG QD PO
     Route: 048
     Dates: start: 20071211, end: 20071212
  7. LAMICTAL [Suspect]
     Dosage: 100 MG QD PO
     Route: 048
     Dates: start: 20071213, end: 20071214
  8. LAMICTAL [Suspect]
     Dosage: 125 MG QD PO
     Route: 048
     Dates: start: 20071215, end: 20071216

REACTIONS (8)
  - EOSINOPHIL PERCENTAGE INCREASED [None]
  - HYPERSENSITIVITY [None]
  - LEUKOPENIA [None]
  - NEUTROPHIL COUNT DECREASED [None]
  - PLATELET COUNT DECREASED [None]
  - RASH MACULAR [None]
  - TREATMENT NONCOMPLIANCE [None]
  - VIRAL INFECTION [None]
